FAERS Safety Report 5478387-0 (Version None)
Quarter: 2007Q4

REPORT INFORMATION
  Report Type: 
  Country: None (occurrence: None)
  Receive Date: 20071005
  Receipt Date: 20070926
  Transmission Date: 20080405
  Serious: Yes (Life-Threatening)
  Sender: FDA-Public Use
  Company Number: B0489012A

PATIENT
  Age: 30 Year
  Sex: Female

DRUGS (6)
  1. LAMICTAL [Suspect]
     Indication: STATUS EPILEPTICUS
     Dosage: 200MG PER DAY
     Route: 048
  2. KEPPRA [Suspect]
     Indication: STATUS EPILEPTICUS
     Dosage: 500MG TWICE PER DAY
     Route: 048
     Dates: start: 20070101, end: 20070620
  3. RIVOTRIL [Suspect]
     Indication: STATUS EPILEPTICUS
     Dosage: .5MG AS REQUIRED
     Route: 048
  4. OMEPRAZOLE [Suspect]
     Dosage: 20MG AS REQUIRED
     Route: 048
  5. LOVENOX [Concomitant]
     Dosage: .4ML PER DAY
     Route: 042
  6. SOLU-MEDROL [Concomitant]
     Indication: ANTIINFLAMMATORY THERAPY
     Dosage: 30MG AS REQUIRED
     Route: 048

REACTIONS (5)
  - AFFECT LABILITY [None]
  - ANXIETY [None]
  - DEPRESSION [None]
  - INSOMNIA [None]
  - SUICIDAL IDEATION [None]
